FAERS Safety Report 7293176-2 (Version None)
Quarter: 2011Q1

REPORT INFORMATION
  Report Type: 
  Country: None (occurrence: None)
  Receive Date: 20110215
  Receipt Date: 20110202
  Transmission Date: 20110831
  Serious: Yes (Death)
  Sender: FDA-Public Use
  Company Number: US-ACTELION-A-US2010-43283

PATIENT

DRUGS (2)
  1. REVATIO [Concomitant]
  2. TRACLEER [Suspect]
     Indication: PULMONARY ARTERIAL HYPERTENSION
     Dosage: UNK
     Route: 048
     Dates: start: 20100713, end: 20101217

REACTIONS (6)
  - RIGHT VENTRICULAR DYSFUNCTION [None]
  - CARDIAC ARREST [None]
  - CHRONIC OBSTRUCTIVE PULMONARY DISEASE [None]
  - PNEUMOCONIOSIS [None]
  - INTERSTITIAL LUNG DISEASE [None]
  - PULMONARY HYPERTENSION [None]
